FAERS Safety Report 20859093 (Version 2)
Quarter: 2023Q1

REPORT INFORMATION
  Report Type: Report from Study
  Country: CA (occurrence: CA)
  Receive Date: 20220523
  Receipt Date: 20230212
  Transmission Date: 20230417
  Serious: Yes (Hospitalization, Other)
  Sender: FDA-Public Use
  Company Number: CA-ABBVIE-22K-028-4378045-00

PATIENT
  Sex: Female

DRUGS (3)
  1. HUMIRA [Suspect]
     Active Substance: ADALIMUMAB
     Indication: Crohn^s disease
     Route: 058
     Dates: start: 20220918
  2. HUMIRA [Suspect]
     Active Substance: ADALIMUMAB
     Route: 058
     Dates: start: 20091210, end: 2022
  3. HUMIRA [Suspect]
     Active Substance: ADALIMUMAB
     Route: 058
     Dates: start: 20220515

REACTIONS (27)
  - Pancreatitis [Unknown]
  - Obstruction [Recovered/Resolved]
  - Abscess [Unknown]
  - Anorectal disorder [Unknown]
  - Pain [Unknown]
  - Psoriasis [Unknown]
  - Proctalgia [Unknown]
  - COVID-19 [Unknown]
  - Crohn^s disease [Unknown]
  - Arthralgia [Not Recovered/Not Resolved]
  - Peripheral swelling [Unknown]
  - Vomiting [Recovered/Resolved]
  - Renal impairment [Not Recovered/Not Resolved]
  - Frequent bowel movements [Unknown]
  - Musculoskeletal pain [Unknown]
  - Diarrhoea [Not Recovered/Not Resolved]
  - Cellulitis [Unknown]
  - Erythema nodosum [Not Recovered/Not Resolved]
  - Paraesthesia [Unknown]
  - Drainage [Unknown]
  - Pyrexia [Recovering/Resolving]
  - Blood iron decreased [Not Recovered/Not Resolved]
  - Chills [Recovering/Resolving]
  - Pancreatitis [Not Recovered/Not Resolved]
  - Blood magnesium decreased [Not Recovered/Not Resolved]
  - Wound complication [Unknown]
  - Fistula discharge [Unknown]

NARRATIVE: CASE EVENT DATE: 20090101
